FAERS Safety Report 12634831 (Version 1)
Quarter: 2016Q3

REPORT INFORMATION
  Report Type: Spontaneous
  Country: US (occurrence: US)
  Receive Date: 20160809
  Receipt Date: 20160809
  Transmission Date: 20161109
  Serious: No
  Sender: FDA-Public Use
  Company Number: US-PFIZER INC-2016345944

PATIENT
  Age: 77 Year
  Sex: Male
  Weight: 82 kg

DRUGS (8)
  1. ATORVASTATIN [Concomitant]
     Active Substance: ATORVASTATIN
     Indication: CARDIAC DISORDER
     Dosage: 80 MG, 1X/DAY AT BEDTIME
     Dates: start: 2002
  2. VIAGRA [Suspect]
     Active Substance: SILDENAFIL CITRATE
     Indication: ERECTILE DYSFUNCTION
     Dosage: 1X/DAY; BELIEVES IT WAS 50MG, BUT NOT 100 PERCENT SURE; 50MG ONCE AT BEDTIME BY MOUTH
     Route: 048
     Dates: start: 201606
  3. BABY ASPIRIN [Concomitant]
     Active Substance: ASPIRIN
     Indication: SURGERY
     Dosage: 81 MG, 1X/DAY
     Dates: start: 2002
  4. GLUSAMIDE [Concomitant]
     Indication: MUSCULOSKELETAL STIFFNESS
  5. GLUSAMIDE [Concomitant]
     Indication: ARTHROPATHY
     Dosage: 500 MG, 2X/DAY
  6. FLUOXETINE [Concomitant]
     Active Substance: FLUOXETINE HYDROCHLORIDE
     Dosage: 40 MG, 1X/DAY AT BEDTIME
  7. ATENOLOL. [Concomitant]
     Active Substance: ATENOLOL
     Indication: CARDIAC DISORDER
     Dosage: 25 MG, 2X/DAY; 25MG TABLET ONCE IN MORNING AND NIGHT
     Dates: start: 2002
  8. TAMSULOSIN [Concomitant]
     Active Substance: TAMSULOSIN
     Indication: CARDIAC DISORDER
     Dosage: 0.4 MG, 1X/DAY; 0.4MG CAPSULE AT BEDTIME
     Dates: start: 2002

REACTIONS (1)
  - Drug ineffective [Unknown]

NARRATIVE: CASE EVENT DATE: 201606
